FAERS Safety Report 10594018 (Version 6)
Quarter: 2015Q2

REPORT INFORMATION
  Report Type: Spontaneous
  Country: US (occurrence: US)
  Receive Date: 20141119
  Receipt Date: 20150629
  Transmission Date: 20150821
  Serious: Yes (Hospitalization, Other)
  Sender: FDA-Public Use
  Company Number: US-GLAXOSMITHKLINE-US2014GSK023104

PATIENT
  Age: 54 Year
  Sex: Female

DRUGS (10)
  1. TAFINLAR [Suspect]
     Active Substance: DABRAFENIB MESYLATE
     Indication: MALIGNANT MELANOMA
     Dosage: 150 MG, QD
     Route: 065
     Dates: start: 20140916, end: 20150306
  2. METOCLOPRAMIDE. [Concomitant]
     Active Substance: METOCLOPRAMIDE
  3. MEKINIST [Suspect]
     Active Substance: TRAMETINIB DIMETHYL SULFOXIDE
     Indication: MALIGNANT MELANOMA
  4. BACLOFEN. [Concomitant]
     Active Substance: BACLOFEN
  5. VESICARE [Concomitant]
     Active Substance: SOLIFENACIN SUCCINATE
  6. DIAZEPAM. [Concomitant]
     Active Substance: DIAZEPAM
  7. OMEPRAZOLE. [Concomitant]
     Active Substance: OMEPRAZOLE
  8. MEKINIST [Suspect]
     Active Substance: TRAMETINIB DIMETHYL SULFOXIDE
     Indication: MALIGNANT MELANOMA
     Dosage: 0.5 MG, QD
     Route: 065
     Dates: start: 20140916
  9. TAFINLAR [Suspect]
     Active Substance: DABRAFENIB MESYLATE
     Indication: RENAL CANCER
  10. TAFINLAR [Suspect]
     Active Substance: DABRAFENIB MESYLATE
     Indication: MALIGNANT MELANOMA
     Dosage: 75 MG, QD
     Route: 065

REACTIONS (5)
  - Drug dose omission [Recovered/Resolved]
  - Nephrolithiasis [Unknown]
  - Renal disorder [Unknown]
  - Hospitalisation [Not Recovered/Not Resolved]
  - Cyst [Unknown]

NARRATIVE: CASE EVENT DATE: 201410
